FAERS Safety Report 5968371-2 (Version None)
Quarter: 2008Q4

REPORT INFORMATION
  Report Type: 
  Country: None (occurrence: None)
  Receive Date: 20081126
  Receipt Date: 20081117
  Transmission Date: 20090506
  Serious: Yes (Hospitalization)
  Sender: FDA-Public Use
  Company Number: FR-AVENTIS-200814072FR

PATIENT
  Age: 83 Year
  Sex: Male

DRUGS (7)
  1. LASIX [Suspect]
     Indication: ATRIAL FIBRILLATION
     Route: 048
     Dates: start: 20080926, end: 20081023
  2. PREVISCAN                          /00789001/ [Suspect]
     Indication: ATRIAL FIBRILLATION
     Route: 048
     Dates: start: 20080926, end: 20081023
  3. TEMERIT [Concomitant]
     Indication: DRUG USE FOR UNKNOWN INDICATION
     Route: 048
  4. VASTAREL [Concomitant]
     Indication: DRUG USE FOR UNKNOWN INDICATION
  5. OGAST [Concomitant]
     Indication: DRUG USE FOR UNKNOWN INDICATION
     Route: 048
  6. DUPHALAC [Concomitant]
     Indication: DRUG USE FOR UNKNOWN INDICATION
     Route: 048
  7. SPASFON                            /00934601/ [Concomitant]
     Indication: DRUG USE FOR UNKNOWN INDICATION

REACTIONS (5)
  - DRUG INTERACTION [None]
  - DRUG LEVEL INCREASED [None]
  - INTERNATIONAL NORMALISED RATIO INCREASED [None]
  - LARGE INTESTINAL HAEMORRHAGE [None]
  - RENAL FAILURE ACUTE [None]
